FAERS Safety Report 26125882 (Version 1)
Quarter: 2025Q4

REPORT INFORMATION
  Report Type: Spontaneous
  Country: EU (occurrence: EU)
  Receive Date: 20251205
  Receipt Date: 20251205
  Transmission Date: 20260118
  Serious: Yes (Hospitalization, Disabling)
  Sender: NOVARTIS
  Company Number: None

PATIENT
  Age: 53 Year
  Sex: Male
  Weight: 80 kg

DRUGS (3)
  1. LEQVIO [Suspect]
     Active Substance: INCLISIRAN SODIUM
     Indication: Hypercholesterolaemia
     Dosage: INYECTABLE
     Route: 058
     Dates: start: 20250810
  2. SERTRALINE HYDROCHLORIDE [Concomitant]
     Active Substance: SERTRALINE HYDROCHLORIDE
     Indication: Anxiety
     Dosage: (1 COMPRIMIDO CADA 24 HORAS, 50 MG COMPRIMIDOS RECUBIERTOS CON PELICULA EFG , 60 COMPRIMIDOS )
     Route: 048
     Dates: start: 20250101
  3. Alprazolam cinfa [Concomitant]
     Indication: Mixed anxiety and depressive disorder
     Dosage: 1 COMPRIMIDO CADA 24 HORAS, 0,5 MG COMPRIMIDOS EFG, 30 COMPRIMIDOS
     Route: 048
     Dates: start: 20250505

REACTIONS (2)
  - Respiratory distress [Recovered/Resolved]
  - Angioedema [Recovered/Resolved]

NARRATIVE: CASE EVENT DATE: 20251110
